FAERS Safety Report 8279069 (Version 3)
Quarter: 2014Q1

REPORT INFORMATION
  Report Type: Spontaneous
  Country: US (occurrence: US)
  Receive Date: 20111208
  Receipt Date: 20140106
  Transmission Date: 20141002
  Serious: Yes (Hospitalization)
  Sender: FDA-Public Use
  Company Number: US-BAYER-2011-114317

PATIENT
  Age: 22 Year
  Sex: Female
  Weight: 49.89 kg

DRUGS (4)
  1. YAZ [Suspect]
     Indication: CONTRACEPTION
     Dosage: UNK
     Dates: start: 20070410, end: 20100501
  2. YAZ [Suspect]
     Indication: MENSTRUAL CYCLE MANAGEMENT
     Dosage: UNK
     Dates: start: 20070410, end: 20100501
  3. NECON [Concomitant]
     Dosage: UNK
     Dates: start: 2010
  4. JUNEL FE [Concomitant]
     Dosage: UNK
     Dates: start: 2010

REACTIONS (4)
  - Cholelithiasis [None]
  - Cholecystitis chronic [None]
  - Abdominal pain [None]
  - Vomiting [None]
